FAERS Safety Report 7577328-X (Version None)
Quarter: 2011Q2

REPORT INFORMATION
  Report Type: 
  Country: None (occurrence: None)
  Receive Date: 20110628
  Receipt Date: 20110117
  Transmission Date: 20111010
  Serious: Yes (Hospitalization, Other)
  Sender: FDA-Public Use
  Company Number: US-BAYER-201038038NA

PATIENT
  Age: 37 Year
  Sex: Female
  Weight: 79.365 kg

DRUGS (3)
  1. TRICOR [Concomitant]
  2. YAZ [Suspect]
     Dosage: UNK
     Dates: start: 20050301, end: 20050901
  3. YASMIN [Suspect]
     Indication: MENSTRUATION IRREGULAR
     Dosage: UNK UNK, QD
     Route: 048
     Dates: start: 20050301, end: 20090301

REACTIONS (2)
  - BILIARY COLIC [None]
  - GALLBLADDER DISORDER [None]
